FAERS Safety Report 7545936-8 (Version None)
Quarter: 2011Q2

REPORT INFORMATION
  Report Type: 
  Country: None (occurrence: None)
  Receive Date: 20110614
  Receipt Date: 20110601
  Transmission Date: 20111010
  Serious: Yes (Hospitalization)
  Sender: FDA-Public Use
  Company Number: PHHY2011US45669

PATIENT
  Sex: Male
  Weight: 81.451 kg

DRUGS (6)
  1. SIMVASTATIN [Concomitant]
     Indication: HYPERLIPIDAEMIA
     Dosage: 40 MG, UNK
     Route: 048
  2. POTASSIUM CHLORIDE [Concomitant]
     Indication: BLOOD POTASSIUM DECREASED
     Dosage: 20 MG, UNK
     Route: 048
  3. EXJADE [Suspect]
     Indication: SERUM FERRITIN INCREASED
  4. HYDROCHLOROTHIAZIDE [Concomitant]
     Indication: HYPERTENSION
     Dosage: 25 MG, UNK
     Route: 048
  5. EXJADE [Suspect]
     Indication: IRON METABOLISM DISORDER
     Dosage: 2500 MG, QD
     Route: 048
     Dates: start: 20110511, end: 20110524
  6. MULTIVITAMIN [Concomitant]
     Dosage: 1000 UNTO 60 UNIT

REACTIONS (10)
  - BODY TEMPERATURE INCREASED [None]
  - GLUCOSE URINE PRESENT [None]
  - PROTEIN URINE PRESENT [None]
  - FATIGUE [None]
  - SEPSIS [None]
  - PANCYTOPENIA [None]
  - INCREASED TENDENCY TO BRUISE [None]
  - BACTERIAL INFECTION [None]
  - DIARRHOEA [None]
  - ABDOMINAL DISCOMFORT [None]
